FAERS Safety Report 15160641 (Version 1)
Quarter: 2018Q3

REPORT INFORMATION
  Report Type: Spontaneous
  Country: US (occurrence: US)
  Receive Date: 20180718
  Receipt Date: 20180718
  Transmission Date: 20181010
  Serious: Yes (Other)
  Sender: FDA-Public Use
  Company Number: PHHY2018US042071

PATIENT
  Sex: Male

DRUGS (2)
  1. BETAMETHASONE. [Suspect]
     Active Substance: BETAMETHASONE
     Indication: FOETAL EXPOSURE DURING PREGNANCY
     Dosage: UNK
     Route: 064
  2. PENICILLIN (BENZYLPENICILLIN) [Suspect]
     Active Substance: PENICILLIN G
     Indication: FOETAL EXPOSURE DURING PREGNANCY
     Dosage: UNK
     Route: 064

REACTIONS (6)
  - Abdominal distension [Unknown]
  - Tracheo-oesophageal fistula [Unknown]
  - Oesophageal atresia [Unknown]
  - Foetal exposure during pregnancy [Unknown]
  - Congenital megacolon [Recovering/Resolving]
  - Premature baby [Unknown]
